FAERS Safety Report 7773499-0 (Version None)
Quarter: 2011Q3

REPORT INFORMATION
  Report Type: 
  Country: None (occurrence: None)
  Receive Date: 20110922
  Receipt Date: 20110916
  Transmission Date: 20111222
  Serious: Yes (Other)
  Sender: FDA-Public Use
  Company Number: NL-ABBOTT-11P-114-0856057-00

PATIENT
  Sex: Female

DRUGS (2)
  1. DEPAKENE [Suspect]
     Indication: BORDERLINE PERSONALITY DISORDER
     Dosage: DAILY DOSE: 300MG
     Route: 048
     Dates: start: 19960101
  2. CARBAMAZEPINE [Suspect]
     Indication: BORDERLINE PERSONALITY DISORDER
     Route: 048
     Dates: start: 19960101

REACTIONS (4)
  - NEUROPATHY PERIPHERAL [None]
  - POLYCYSTIC OVARIES [None]
  - VITAMIN B12 DEFICIENCY [None]
  - EPILEPSY [None]
